FAERS Safety Report 14259831 (Version 3)
Quarter: 2017Q4

REPORT INFORMATION
  Report Type: Report from Study
  Country: JP (occurrence: JP)
  Receive Date: 20171207
  Receipt Date: 20171218
  Transmission Date: 20180321
  Serious: Yes (Hospitalization)
  Sender: FDA-Public Use
  Company Number: JP-PFIZER INC-2017520415

PATIENT
  Age: 81 Year
  Sex: Male
  Weight: 56 kg

DRUGS (34)
  1. CELECOX [Suspect]
     Active Substance: CELECOXIB
     Dosage: 200 MG, 1X/DAY
     Dates: start: 20170802, end: 20170809
  2. ASP1517 [Suspect]
     Active Substance: ROXADUSTAT
     Indication: NEPHROGENIC ANAEMIA
     Dosage: 100 MG, TUESDAY, THURSDAY, SATURDAY
     Route: 048
     Dates: start: 20160913, end: 20161008
  3. ASP1517 [Suspect]
     Active Substance: ROXADUSTAT
     Dosage: 120 MG, TUESDAY, THURSDAY, SATURDAY
     Route: 048
     Dates: start: 20170214, end: 20170603
  4. CEFDINIR. [Suspect]
     Active Substance: CEFDINIR
     Dosage: 100 MG, 1X/DAY
     Route: 048
     Dates: start: 20170727, end: 20170727
  5. CARVEDILOL. [Concomitant]
     Active Substance: CARVEDILOL
     Dosage: 2.5 MG, 2X/DAY
     Route: 048
     Dates: start: 20170722
  6. PRECIPITATED CALCIUM CARBONATE [Concomitant]
     Active Substance: CALCIUM CARBONATE
     Indication: HYPERPHOSPHATAEMIA
     Dosage: 250 MG, 3X/DAY
     Route: 048
     Dates: start: 20170411
  7. MYSLEE [Concomitant]
     Active Substance: ZOLPIDEM TARTRATE
     Indication: INSOMNIA
     Dosage: 10 MG, UNK
     Route: 048
     Dates: start: 20161229
  8. CEFDINIR. [Suspect]
     Active Substance: CEFDINIR
     Dosage: 100 MG, 1X/DAY
     Route: 048
     Dates: start: 20170719, end: 20170719
  9. LOCHOL /01224502/ [Concomitant]
     Active Substance: FLUVASTATIN SODIUM
     Indication: HYPERCHOLESTEROLAEMIA
     Dosage: 10 MG, 1X/DAY
     Route: 048
     Dates: end: 20171028
  10. ATELEC [Concomitant]
     Active Substance: CILNIDIPINE
     Indication: HYPERTENSION
     Dosage: 20 MG, 1X/DAY
     Route: 048
     Dates: end: 20171104
  11. ASPIRIN W/CLOPIDOGREL [Concomitant]
     Active Substance: ASPIRIN\CLOPIDOGREL
     Indication: ANGINA PECTORIS
     Dosage: 1 TABLET, ONCE DAILY
     Route: 048
     Dates: end: 20171018
  12. DIOVAN [Concomitant]
     Active Substance: VALSARTAN
     Dosage: 80 MG, 1X/DAY
     Route: 048
     Dates: start: 20170829, end: 20171008
  13. ASP1517 [Suspect]
     Active Substance: ROXADUSTAT
     Dosage: 100 MG, TUESDAY, THURSDAY, SATURDAY
     Route: 048
     Dates: start: 20161122, end: 20161217
  14. ASP1517 [Suspect]
     Active Substance: ROXADUSTAT
     Dosage: 120 MG, TUESDAY, THURSDAY, SATURDAY
     Route: 048
     Dates: start: 20161220, end: 20170114
  15. KIDMIN /01983701/ [Suspect]
     Active Substance: AMINO ACIDS
     Indication: NUTRITIONAL SUPPLEMENTATION
     Dosage: 200 ML/ DAY, TUESDAY, THURSDAY, SATURDAY
     Route: 042
     Dates: start: 20170513, end: 20170919
  16. DIART [Concomitant]
     Active Substance: AZOSEMIDE
     Indication: OEDEMA DUE TO RENAL DISEASE
     Dosage: 60 MG, 1X/DAY
     Route: 048
     Dates: end: 20171028
  17. ALPROSTADIL. [Concomitant]
     Active Substance: ALPROSTADIL
     Indication: PERIPHERAL ARTERIAL OCCLUSIVE DISEASE
     Dosage: 10 UG, TUESDAY, THURSDAY, SATURDAY
     Route: 042
  18. ASP1517 [Suspect]
     Active Substance: ROXADUSTAT
     Dosage: 70 MG, TUESDAY, THURSDAY, SATURDAY
     Route: 048
     Dates: start: 20161011, end: 20161119
  19. ASP1517 [Suspect]
     Active Substance: ROXADUSTAT
     Dosage: 150 MG, TUESDAY, THURSDAY, SATURDAY
     Route: 048
     Dates: start: 20170117, end: 20170211
  20. DIOVAN [Concomitant]
     Active Substance: VALSARTAN
     Indication: HYPERTENSION
     Dosage: 80 MG, 2X/DAY
     Route: 048
     Dates: end: 20170828
  21. PERSANTINE [Concomitant]
     Active Substance: DIPYRIDAMOLE
     Indication: ANGINA PECTORIS
     Dosage: 150 MG, 2X/DAY
     Route: 048
  22. FEBURIC [Concomitant]
     Active Substance: FEBUXOSTAT
     Indication: HYPERURICAEMIA
     Dosage: 10 MG, 1X/DAY
     Route: 048
     Dates: end: 20170731
  23. ASP1517 [Suspect]
     Active Substance: ROXADUSTAT
     Dosage: 150 MG, TUESDAY, THURSDAY, SATURDAY
     Route: 048
     Dates: start: 20170606, end: 20170902
  24. NITROPEN [Suspect]
     Active Substance: NITROGLYCERIN
     Indication: ANGINA PECTORIS
     Dosage: 0.3 MG, AS NEEDED
     Route: 060
     Dates: start: 20170514
  25. CEFCAPENE [Suspect]
     Active Substance: CEFCAPENE
     Dosage: 300 MG, 1X/DAY
     Dates: start: 20170801, end: 20170807
  26. FEBURIC [Concomitant]
     Active Substance: FEBUXOSTAT
     Dosage: 5 MG, 1X/DAY
     Dates: start: 20170801, end: 20171009
  27. KIKLIN [Concomitant]
     Active Substance: BIXALOMER
     Indication: HYPERPHOSPHATAEMIA
     Dosage: 2250 MG, 1X/DAY
     Route: 048
     Dates: end: 20161121
  28. RABEPRAZOLE NA [Concomitant]
     Active Substance: RABEPRAZOLE SODIUM
     Indication: GASTROOESOPHAGEAL REFLUX DISEASE
     Dosage: 10 MG, 1X/DAY
     Route: 048
  29. NICORANDIL [Concomitant]
     Active Substance: NICORANDIL
     Indication: ANGINA PECTORIS
     Dosage: 5 MG, 3X/DAY
     Route: 048
  30. KIKLIN [Concomitant]
     Active Substance: BIXALOMER
     Dosage: 3000 MG, 1X/DAY
     Route: 048
     Dates: start: 20161122, end: 20161219
  31. KIKLIN [Concomitant]
     Active Substance: BIXALOMER
     Dosage: 1250 MG, 3X/DAY
     Route: 048
     Dates: start: 20161220, end: 20171009
  32. ZOLPIDEM TARTRATE. [Suspect]
     Active Substance: ZOLPIDEM TARTRATE
     Indication: INSOMNIA
     Dosage: 10 MG, UNK
     Route: 048
     Dates: start: 20170815
  33. CARVEDILOL. [Concomitant]
     Active Substance: CARVEDILOL
     Indication: HYPERTENSION
     Dosage: 2.5 MG, 1X/DAY
     Route: 048
     Dates: end: 20170721
  34. MIYA-BM [Concomitant]
     Active Substance: CLOSTRIDIUM BUTYRICUM SPORES STRAIN M-55
     Indication: CONSTIPATION
     Dosage: 20 MG, 2X/DAY
     Route: 048

REACTIONS (3)
  - Interstitial lung disease [Recovering/Resolving]
  - Angina pectoris [Recovered/Resolved]
  - Peripheral arterial occlusive disease [Recovered/Resolved]

NARRATIVE: CASE EVENT DATE: 20170514
